FAERS Safety Report 4282707-2 (Version None)
Quarter: 2004Q1

REPORT INFORMATION
  Report Type: 
  Country: None (occurrence: None)
  Receive Date: 20040130
  Receipt Date: 20030321
  Transmission Date: 20041129
  Serious: No
  Sender: FDA-Public Use
  Company Number: US-BRISTOL-MYERS SQUIBB COMPANY-12219283

PATIENT
  Sex: Female

DRUGS (1)
  1. SERZONE [Suspect]
     Indication: DEPRESSION
     Dosage: STARTED TAKING 400 MG ONCE DAILY THEN GRADUALLY TITRATED DOWN TO 250 MG ONCE DAILY
     Route: 048

REACTIONS (5)
  - CRYING [None]
  - DRUG EXPOSURE DURING PREGNANCY [None]
  - INSOMNIA [None]
  - MOOD ALTERED [None]
  - PALPITATIONS [None]
